FAERS Safety Report 7050177-7 (Version None)
Quarter: 2010Q4

REPORT INFORMATION
  Report Type: 
  Country: None (occurrence: None)
  Receive Date: 20101018
  Receipt Date: 20101005
  Transmission Date: 20110411
  Serious: Yes (Other)
  Sender: FDA-Public Use
  Company Number: US-ROCHE-717491

PATIENT
  Sex: Female

DRUGS (3)
  1. ACCUTANE [Suspect]
     Indication: PRODUCT USED FOR UNKNOWN INDICATION
     Route: 065
     Dates: start: 20000101
  2. SOTRET [Suspect]
     Route: 048
     Dates: start: 20050819, end: 20060202
  3. SOTRET [Suspect]
     Route: 048
     Dates: start: 20060203, end: 20060505

REACTIONS (4)
  - ABSCESS INTESTINAL [None]
  - COLONIC STENOSIS [None]
  - CROHN'S DISEASE [None]
  - INFLAMMATORY BOWEL DISEASE [None]
